FAERS Safety Report 15120463 (Version 1)
Quarter: 2018Q4

REPORT INFORMATION
  Report Type: Spontaneous
  Country: US (occurrence: US)
  Receive Date: 20180709
  Receipt Date: 20180709
  Transmission Date: 20190204
  Serious: No
  Sender: FDA-Public Use
  Company Number: US-AKRON, INC.-2051561

PATIENT
  Age: 88 Year
  Sex: Female

DRUGS (1)
  1. CLOBETASOL PROPIONATE CREAM [Suspect]
     Active Substance: CLOBETASOL PROPIONATE
     Route: 061

REACTIONS (3)
  - Chills [Unknown]
  - Feeling abnormal [Unknown]
  - Feeling cold [Unknown]
